FAERS Safety Report 9832179 (Version 1)
Quarter: 2014Q1

REPORT INFORMATION
  Report Type: Report from Study
  Country: SE (occurrence: SE)
  Receive Date: 20140121
  Receipt Date: 20140121
  Transmission Date: 20141002
  Serious: Yes (Hospitalization)
  Sender: FDA-Public Use
  Company Number: SE-BAYER-2014-007729

PATIENT
  Sex: Female

DRUGS (5)
  1. SORAFENIB (RAF KINASE INHIBITOR) [Suspect]
     Indication: TRANSITIONAL CELL CARCINOMA METASTATIC
     Dosage: 400 MG
     Dates: end: 20140109
  2. VINFLUNINE [Suspect]
     Indication: TRANSITIONAL CELL CARCINOMA METASTATIC
     Dosage: 320 MG
     Dates: end: 20140103
  3. SODIUM CHLORIDE [Concomitant]
     Dosage: 1000 MG X 2
  4. MOVICOL [Concomitant]
     Dosage: 1 BAG, PRN
  5. CILAXORAL [Concomitant]
     Dosage: UNK UNK, PRN

REACTIONS (1)
  - Febrile neutropenia [Not Recovered/Not Resolved]
